FAERS Safety Report 4387014-5 (Version None)
Quarter: 2004Q2

REPORT INFORMATION
  Report Type: 
  Country: None (occurrence: None)
  Receive Date: 20040630
  Receipt Date: 20031107
  Transmission Date: 20050107
  Serious: No
  Sender: FDA-Public Use
  Company Number: US-GLAXOSMITHKLINE-A0433330A

PATIENT
  Age: 53 Year
  Sex: Female

DRUGS (1)
  1. ADVAIR HFA [Suspect]
     Indication: DRUG USE FOR UNKNOWN INDICATION
     Dosage: 1PUFF TWICE PER DAY
     Route: 055
     Dates: start: 20030101

REACTIONS (3)
  - APHONIA [None]
  - ASTHMA [None]
  - HOARSENESS [None]
